FAERS Safety Report 18883478 (Version 1)
Quarter: 2021Q1

REPORT INFORMATION
  Report Type: Spontaneous
  Country: US (occurrence: US)
  Receive Date: 20210211
  Receipt Date: 20210211
  Transmission Date: 20210420
  Serious: No
  Sender: FDA-Public Use
  Company Number: US-PERRIGO-20US015619

PATIENT

DRUGS (1)
  1. CETIRIZINE HYDROCHLORIDE. [Suspect]
     Active Substance: CETIRIZINE HYDROCHLORIDE
     Indication: PRODUCT USED FOR UNKNOWN INDICATION
     Dosage: UNKNOWN, UNKNOWN
     Route: 048
     Dates: start: 202004, end: 202010

REACTIONS (6)
  - Headache [Unknown]
  - Fatigue [Unknown]
  - Hunger [Unknown]
  - Asthenia [Unknown]
  - Weight increased [Unknown]
  - Visual impairment [Unknown]

NARRATIVE: CASE EVENT DATE: 2020
